FAERS Safety Report 12486071 (Version 2)
Quarter: 2016Q2

REPORT INFORMATION
  Report Type: Spontaneous
  Country: NL (occurrence: NL)
  Receive Date: 20160621
  Receipt Date: 20160630
  Transmission Date: 20160815
  Serious: Yes (Hospitalization)
  Sender: FDA-Public Use
  Company Number: NL-PFIZER INC-2016310607

PATIENT
  Age: 69 Year
  Sex: Female

DRUGS (21)
  1. METFORMINE [Concomitant]
     Active Substance: METFORMIN HYDROCHLORIDE
     Dosage: 500 MG, BID
     Route: 048
  2. CALCIUM CARBONATE. [Concomitant]
     Active Substance: CALCIUM CARBONATE
     Dosage: 500 MG, TID
     Route: 048
  3. PARACETAMOL CODEINE [Concomitant]
     Active Substance: ACETAMINOPHEN\CODEINE PHOSPHATE
     Dosage: UNK UNK, TID
     Route: 048
  4. INSULIN ASPART [Concomitant]
     Active Substance: INSULIN ASPART
     Dosage: UNK, 3X/DAY
     Route: 058
  5. MOMETASONE FUROATE. [Concomitant]
     Active Substance: MOMETASONE FUROATE
     Dosage: UNK
     Route: 003
  6. LANTUS SOLOSTAR INJ 100E/ML PEN 3ML [Concomitant]
     Dosage: 50 IU, QD
     Route: 058
  7. ATORVASTATINE /01326102/ [Concomitant]
     Dosage: 40 MG, QD
     Route: 048
  8. AMLODIPINE [Concomitant]
     Active Substance: AMLODIPINE BESYLATE
     Dosage: 10 MG, QD
     Route: 048
  9. PANTOPRAZOLE [Suspect]
     Active Substance: PANTOPRAZOLE SODIUM
     Dosage: 40 MG, QD
     Route: 048
     Dates: start: 2014, end: 20150525
  10. VALSARTAN. [Concomitant]
     Active Substance: VALSARTAN
     Dosage: 80 MG, QD
     Route: 048
     Dates: start: 2015
  11. LORMETAZEPAM [Concomitant]
     Active Substance: LORMETAZEPAM
     Dosage: 2 MG, UNK
     Route: 048
  12. ACETYLSALICYLIC ACID [Concomitant]
     Active Substance: ASPIRIN
     Dosage: 80 MG, QD
     Route: 048
  13. DEXTRAN 70 W/HYPROMELLOSE [Concomitant]
     Dosage: 1 GTT, TID
     Route: 047
  14. SALBUTAMOL AEROSOL 100UG/DO [Concomitant]
     Active Substance: ALBUTEROL
     Dosage: UNK
     Route: 055
  15. CITALOPRAM [Concomitant]
     Active Substance: CITALOPRAM HYDROBROMIDE
     Dosage: 20 MG, QD
     Route: 048
  16. BECLOMETASON/FORMOTEROL AEROSOL 100/6UG/DO [Concomitant]
     Dosage: UNK, 3X/DAY
     Route: 055
  17. TIOTROPIUM BROMIDE [Concomitant]
     Active Substance: TIOTROPIUM BROMIDE
     Dosage: 18 UG, QD
     Route: 055
  18. EPITIZIDE W/TRIAMTERENE [Concomitant]
     Dosage: UNK, 1X/DAY
     Route: 048
  19. MACROGOL + ELECTROLYTES SANDOZ [Concomitant]
     Dosage: UNK
     Route: 048
  20. DESLORATADINE. [Concomitant]
     Active Substance: DESLORATADINE
     Dosage: 5 MG, UNK
     Route: 048
  21. HYDROQUININE HYDROBROMIDE [Concomitant]
     Active Substance: HYDROQUININE HYDROBROMIDE
     Dosage: UNK, 2X/DAY
     Route: 048

REACTIONS (3)
  - Hypomagnesaemia [Recovered/Resolved]
  - Hypokalaemia [Recovered/Resolved]
  - Hypocalcaemia [Recovered/Resolved]

NARRATIVE: CASE EVENT DATE: 20160525
